FAERS Safety Report 4825700-0 (Version None)
Quarter: 2005Q4

REPORT INFORMATION
  Report Type: 
  Country: None (occurrence: None)
  Receive Date: 20051109
  Receipt Date: 20051031
  Transmission Date: 20060501
  Serious: Yes (Death, Hospitalization, Other)
  Sender: FDA-Public Use
  Company Number: 2005-10-0663

PATIENT
  Age: 68 Year
  Sex: Male
  Weight: 82 kg

DRUGS (3)
  1. PEG-INTRON [Suspect]
     Indication: HEPATITIS C
     Dosage: 100 MCG QW SUBCUTANEOUS
     Route: 058
     Dates: start: 20050902, end: 20050922
  2. REBETOL [Suspect]
     Indication: HEPATITIS C
     Dosage: 1000 MG ORAL
     Route: 048
     Dates: start: 20050902, end: 20050929
  3. GLYPHAGEN C INJECTABLE [Concomitant]

REACTIONS (11)
  - ASTHENIA [None]
  - CARDIO-RESPIRATORY ARREST [None]
  - ENDOCARDITIS [None]
  - FAECES DISCOLOURED [None]
  - GASTROINTESTINAL ULCER HAEMORRHAGE [None]
  - HAEMOGLOBIN DECREASED [None]
  - MELAENA [None]
  - NAUSEA [None]
  - PYREXIA [None]
  - SEPSIS [None]
  - SKIN INFECTION [None]
